FAERS Safety Report 6619317-5 (Version None)
Quarter: 2010Q1

REPORT INFORMATION
  Report Type: 
  Country: None (occurrence: None)
  Receive Date: 20100303
  Receipt Date: 20100216
  Transmission Date: 20100710
  Serious: Yes (Disabling, Other)
  Sender: FDA-Public Use
  Company Number: 2010AL001082

PATIENT
  Age: 71 Year
  Sex: Male

DRUGS (2)
  1. SULFATRIM PEDIATRIC [Suspect]
     Indication: STENOTROPHOMONAS INFECTION
     Dosage: 80 MG;TID;PO
     Route: 048
     Dates: start: 20100121, end: 20100127
  2. WARFARIN SODIUM [Concomitant]

REACTIONS (2)
  - OROPHARYNGEAL BLISTERING [None]
  - TONGUE BLISTERING [None]
